FAERS Safety Report 4701379-3 (Version None)
Quarter: 2005Q2

REPORT INFORMATION
  Report Type: 
  Country: None (occurrence: None)
  Receive Date: 20050627
  Receipt Date: 20050613
  Transmission Date: 20051028
  Serious: Yes (Hospitalization)
  Sender: FDA-Public Use
  Company Number: A-CH2005-09938

PATIENT
  Age: 68 Year
  Sex: Female

DRUGS (3)
  1. TRACLEER [Suspect]
     Indication: PULMONARY HYPERTENSION
     Dates: start: 20020101
  2. MARCUMAR [Concomitant]
  3. HEPARIN [Concomitant]

REACTIONS (2)
  - ANAEMIA [None]
  - CEREBRAL HAEMORRHAGE [None]
